FAERS Safety Report 5154206-7 (Version None)
Quarter: 2006Q4

REPORT INFORMATION
  Report Type: 
  Country: None (occurrence: None)
  Receive Date: 20061120
  Receipt Date: 20060913
  Transmission Date: 20070319
  Serious: Yes (Death, Life-Threatening, Hospitalization)
  Sender: FDA-Public Use
  Company Number: PHBS2006JP14171

PATIENT
  Age: 55 Year
  Sex: Female
  Weight: 36 kg

DRUGS (9)
  1. ANPLAG [Concomitant]
     Indication: RAYNAUD'S PHENOMENON
     Dosage: 300 MG/D
     Route: 048
     Dates: start: 19980127
  2. PRORENAL [Concomitant]
     Indication: RAYNAUD'S PHENOMENON
     Dosage: 10 UG/D
     Dates: start: 19980127
  3. URSO [Concomitant]
     Indication: BILIARY CIRRHOSIS PRIMARY
     Dosage: 300 MG/D
     Route: 048
  4. PYDOXAL [Concomitant]
     Indication: JOINT DESTRUCTION
     Dosage: 20 MG/D
     Route: 048
     Dates: start: 19980127
  5. METALCAPTASE [Concomitant]
     Indication: JOINT DESTRUCTION
     Dosage: 300 MG/D
     Route: 048
     Dates: start: 19980127
  6. ALTAT [Concomitant]
     Indication: PROPHYLAXIS AGAINST GASTROINTESTINAL ULCER
     Dosage: 150 MG/D
     Route: 048
     Dates: start: 20040511
  7. LIPLE [Concomitant]
     Indication: RAYNAUD'S PHENOMENON
     Dosage: 1 DF, QD
     Route: 065
     Dates: start: 20050621
  8. PALUX [Concomitant]
     Indication: RAYNAUD'S PHENOMENON
     Dosage: 1 DF, QD
  9. NEORAL [Suspect]
     Indication: INTERSTITIAL LUNG DISEASE
     Dosage: 150 MG/D
     Route: 048
     Dates: start: 20030610, end: 20060206

REACTIONS (28)
  - ACUTE PULMONARY OEDEMA [None]
  - ANOREXIA [None]
  - ASTHENIA [None]
  - BLOOD CREATININE INCREASED [None]
  - BLOOD GASES ABNORMAL [None]
  - BLOOD LACTATE DEHYDROGENASE INCREASED [None]
  - BLOOD PRESSURE INCREASED [None]
  - BLOOD UREA INCREASED [None]
  - BODY TEMPERATURE INCREASED [None]
  - CONCOMITANT DISEASE PROGRESSION [None]
  - GASTROINTESTINAL DISORDER [None]
  - HAEMODIALYSIS [None]
  - HAEMOGLOBIN DECREASED [None]
  - HAEMOLYTIC URAEMIC SYNDROME [None]
  - HAPTOGLOBIN DECREASED [None]
  - MALAISE [None]
  - MALNUTRITION [None]
  - MICROANGIOPATHIC HAEMOLYTIC ANAEMIA [None]
  - OEDEMA PERIPHERAL [None]
  - PROTEIN URINE PRESENT [None]
  - RED BLOOD CELL SCHISTOCYTES PRESENT [None]
  - RENAL FAILURE ACUTE [None]
  - SCLERODERMA RENAL CRISIS [None]
  - SWELLING [None]
  - SYSTEMIC SCLEROSIS [None]
  - THROMBOCYTOPENIA [None]
  - THROMBOTIC MICROANGIOPATHY [None]
  - WHITE BLOOD CELL COUNT INCREASED [None]
